FAERS Safety Report 25724695 (Version 1)
Quarter: 2025Q3

REPORT INFORMATION
  Report Type: Spontaneous
  Country: RU (occurrence: RU)
  Receive Date: 20250826
  Receipt Date: 20250826
  Transmission Date: 20251021
  Serious: Yes (Hospitalization)
  Sender: SANDOZ
  Company Number: None

PATIENT
  Sex: Female
  Weight: 33 kg

DRUGS (1)
  1. AMOXICILLIN\CLAVULANATE POTASSIUM [Suspect]
     Active Substance: AMOXICILLIN\CLAVULANATE POTASSIUM
     Indication: Pyelonephritis
     Dosage: 1000 MG 3 TIMES A DAY INTRAVENOUSLY BY DRIP
     Route: 041
     Dates: start: 20250814, end: 20250814

REACTIONS (1)
  - Hyperaemia [Recovered/Resolved]

NARRATIVE: CASE EVENT DATE: 20250814
